FAERS Safety Report 4812922-8 (Version None)
Quarter: 2005Q4

REPORT INFORMATION
  Report Type: 
  Country: None (occurrence: None)
  Receive Date: 20051028
  Receipt Date: 20050516
  Transmission Date: 20060501
  Serious: Yes (Hospitalization)
  Sender: FDA-Public Use
  Company Number: US-GLAXOSMITHKLINE-A0558785A

PATIENT
  Age: 76 Year
  Sex: Male

DRUGS (4)
  1. ADVAIR DISKUS 100/50 [Suspect]
     Indication: CHRONIC OBSTRUCTIVE PULMONARY DISEASE
     Dosage: 1PUFF TWICE PER DAY
     Route: 055
  2. FLONASE [Concomitant]
  3. ALBUTEROL [Concomitant]
  4. IPRATROPIUM BROMIDE [Concomitant]

REACTIONS (3)
  - DYSPHONIA [None]
  - LARYNGITIS [None]
  - PNEUMONIA [None]
